FAERS Safety Report 8125765-7 (Version None)
Quarter: 2012Q1

REPORT INFORMATION
  Report Type: 
  Country: None (occurrence: None)
  Receive Date: 20120209
  Receipt Date: 20101203
  Transmission Date: 20120608
  Serious: Yes (Death, Hospitalization)
  Sender: FDA-Public Use
  Company Number: BE-CELGENEUS-013-21880-10112784

PATIENT
  Sex: Male
  Weight: 54 kg

DRUGS (6)
  1. PRAMIPEXOLE DIHYDROCHLORIDE [Concomitant]
     Indication: PAIN
     Dosage: .18 MILLIGRAM
     Route: 048
     Dates: start: 20100101
  2. REVLIMID [Suspect]
     Indication: MULTIPLE MYELOMA
     Dosage: 5 MILLIGRAM
     Route: 048
     Dates: start: 20100906, end: 20100914
  3. OMEPRAZOLE [Concomitant]
     Dosage: 20 MILLIGRAM
     Route: 048
     Dates: start: 20060101
  4. DEXAMETHASONE [Suspect]
     Indication: MULTIPLE MYELOMA
     Dosage: 1.3333 MILLIGRAM
     Route: 048
     Dates: start: 20091013, end: 20101113
  5. ACYCLOVIR [Concomitant]
     Dosage: 800 MILLIGRAM
     Route: 048
     Dates: start: 20060101
  6. LEVOTHYROXINE SODIUM [Concomitant]
     Dosage: 50 MILLIGRAM
     Route: 048
     Dates: start: 20050101

REACTIONS (2)
  - MULTIPLE MYELOMA [None]
  - NEUROPATHY PERIPHERAL [None]
